FAERS Safety Report 13923877 (Version 4)
Quarter: 2017Q4

REPORT INFORMATION
  Report Type: Spontaneous
  Country: US (occurrence: US)
  Receive Date: 20170831
  Receipt Date: 20171219
  Transmission Date: 20180320
  Serious: No
  Sender: FDA-Public Use
  Company Number: US-PFIZER INC-2017374733

PATIENT
  Age: 63 Year
  Sex: Male
  Weight: 80 kg

DRUGS (3)
  1. SUTENT [Suspect]
     Active Substance: SUNITINIB MALATE
     Dosage: 25 MG, CYCLIC (D1-28 Q 42 DAYS)
     Route: 048
     Dates: start: 20170817
  2. SUTENT [Suspect]
     Active Substance: SUNITINIB MALATE
     Dosage: 25 MG, CYCLIC (D1-28 Q 42 DAYS)
     Route: 048
     Dates: start: 20170817
  3. SUTENT [Suspect]
     Active Substance: SUNITINIB MALATE
     Indication: RENAL CANCER METASTATIC
     Dosage: 37.5 MG, CYCLIC [DAILYX4WKS THEN 2WKOFF], (D 1-28 Q42 DAYS)
     Route: 048
     Dates: start: 20170817

REACTIONS (7)
  - Food poisoning [Unknown]
  - Abdominal discomfort [Unknown]
  - Hyperventilation [Unknown]
  - Blood potassium increased [Not Recovered/Not Resolved]
  - Abdominal pain upper [Unknown]
  - Dyspnoea [Unknown]
  - Diarrhoea [Not Recovered/Not Resolved]

NARRATIVE: CASE EVENT DATE: 201708
